FAERS Safety Report 7835797-1 (Version None)
Quarter: 2011Q4

REPORT INFORMATION
  Report Type: 
  Country: None (occurrence: None)
  Receive Date: 20111024
  Receipt Date: 20111012
  Transmission Date: 20120403
  Serious: Yes (Hospitalization)
  Sender: FDA-Public Use
  Company Number: US-BAYER-2011-055390

PATIENT
  Age: 41 Year
  Sex: Female
  Weight: 115 kg

DRUGS (25)
  1. TYLENOL WITH MIGRAINE [Concomitant]
     Dosage: UNK UNK, PRN
  2. ZOLOFT [Concomitant]
     Indication: DEPRESSION
     Dosage: UNK
     Dates: start: 19990101
  3. GABAPENTIN [Concomitant]
     Dosage: UNK
     Dates: start: 20100228
  4. LEVSIN [Concomitant]
     Dosage: UNK
     Dates: start: 20100228
  5. NAPROSYN [Concomitant]
  6. YASMIN [Suspect]
  7. LASIX [Concomitant]
  8. YAZ [Suspect]
     Indication: PREMENSTRUAL SYNDROME
     Dosage: UNK
     Dates: start: 20100101
  9. YASMIN [Suspect]
     Indication: PREMENSTRUAL SYNDROME
     Dosage: UNK
     Dates: start: 20100101
  10. ALBUTEROL [Concomitant]
  11. ALEVE [Concomitant]
  12. CIPROFLOXACIN [Concomitant]
     Dosage: 750 MG, UNK
     Dates: start: 20100224
  13. BENTYL [Concomitant]
     Dosage: UNK
     Dates: start: 20100228
  14. VISTARIL [Concomitant]
     Dosage: UNK
     Dates: start: 20100228
  15. YAZ [Suspect]
  16. VANIQA [Concomitant]
     Dosage: UNK
     Dates: start: 20100121
  17. KLONOPIN [Concomitant]
     Dosage: UNK
     Dates: start: 20100228
  18. KEFLEX [Concomitant]
  19. ZOLOFT [Concomitant]
     Indication: PREMENSTRUAL SYNDROME
  20. PEPCID [Concomitant]
     Dosage: UNK
     Dates: start: 20100228
  21. ZOVAR [Concomitant]
  22. PRILOSEC [Concomitant]
     Dosage: 20 MG, UNK
     Dates: start: 20100224
  23. METFORMIN HCL [Concomitant]
     Dosage: UNK
     Dates: start: 20100228
  24. PHENERGAN HCL [Concomitant]
     Dosage: UNK
     Dates: start: 20100228
  25. DARVOCET [Concomitant]
     Dosage: UNK
     Dates: start: 20100228

REACTIONS (5)
  - PAIN [None]
  - PULMONARY EMBOLISM [None]
  - DEEP VEIN THROMBOSIS [None]
  - INJURY [None]
  - MENTAL DISORDER [None]
